FAERS Safety Report 24327754 (Version 1)
Quarter: 2024Q3

REPORT INFORMATION
  Report Type: Report from Study
  Country: US (occurrence: US)
  Receive Date: 20240917
  Receipt Date: 20240917
  Transmission Date: 20241017
  Serious: Yes (Disabling)
  Sender: ALNYLAM PHARMACEUTICALS
  Company Number: US-ALNYLAM PHARMACEUTICALS, INC.-ALN-2024-005080

PATIENT

DRUGS (1)
  1. GIVLAARI [Suspect]
     Active Substance: GIVOSIRAN SODIUM
     Indication: Porphyria acute
     Dosage: UNK
     Route: 065
     Dates: start: 20230216, end: 20230216

REACTIONS (4)
  - Back pain [Unknown]
  - Anxiety [Unknown]
  - Product dose omission issue [Unknown]
  - Ill-defined disorder [Unknown]

NARRATIVE: CASE EVENT DATE: 20240909
